FAERS Safety Report 18462075 (Version 1)
Quarter: 2020Q4

REPORT INFORMATION
  Report Type: Spontaneous
  Country: US (occurrence: US)
  Receive Date: 20201103
  Receipt Date: 20201103
  Transmission Date: 20210114
  Serious: Yes (Hospitalization, Other)
  Sender: FDA-Public Use
  Company Number: None

PATIENT
  Age: 70 Year
  Sex: Male

DRUGS (16)
  1. AZITHROMYCIN ANHYDROUS. [Concomitant]
     Active Substance: AZITHROMYCIN ANHYDROUS
     Dates: start: 20200324
  2. HUMULIN NOS [Concomitant]
     Active Substance: INSULIN HUMAN
     Dates: start: 20200925
  3. METOPROLOL. [Concomitant]
     Active Substance: METOPROLOL
     Dates: start: 20201009
  4. MYCOPHENOLAT [Concomitant]
     Active Substance: MYCOPHENOLATE MOFETIL
     Dates: start: 20200630
  5. DILTIAZEM. [Concomitant]
     Active Substance: DILTIAZEM
     Dates: start: 20200317
  6. PANTOPRAZOLE [Concomitant]
     Active Substance: PANTOPRAZOLE
  7. ACYCLOVIR. [Concomitant]
     Active Substance: ACYCLOVIR
     Dates: start: 20200729
  8. SMZ-TMP [Concomitant]
     Active Substance: SULFAMETHOXAZOLE\TRIMETHOPRIM
     Dates: start: 20201012
  9. MONTELUKAST [Concomitant]
     Active Substance: MONTELUKAST SODIUM
     Dates: start: 20200904
  10. TACROLIMUS. [Suspect]
     Active Substance: TACROLIMUS
     Indication: ORGAN TRANSPLANT
     Dosage: ?          OTHER FREQUENCY:1 PO Q 12 HRS;?
     Route: 048
     Dates: start: 20200130
  11. ATORVASTATIN [Concomitant]
     Active Substance: ATORVASTATIN
     Dates: start: 20200501
  12. PREDNISONE. [Concomitant]
     Active Substance: PREDNISONE
     Dates: start: 20200714
  13. JANUVIA [Concomitant]
     Active Substance: SITAGLIPTIN PHOSPHATE
     Dates: start: 20200722
  14. METFORMIN [Concomitant]
     Active Substance: METFORMIN HYDROCHLORIDE
     Dates: start: 20200619
  15. LISINOPRIL. [Concomitant]
     Active Substance: LISINOPRIL
     Dates: start: 20200928
  16. TACROLIMUS. [Concomitant]
     Active Substance: TACROLIMUS
     Dates: start: 20200513

REACTIONS (1)
  - Hernia hiatus repair [None]

NARRATIVE: CASE EVENT DATE: 20201102
